FAERS Safety Report 7624577-8 (Version None)
Quarter: 2011Q3

REPORT INFORMATION
  Report Type: 
  Country: None (occurrence: None)
  Receive Date: 20110720
  Receipt Date: 20091120
  Transmission Date: 20111222
  Serious: Yes (Death, Other)
  Sender: FDA-Public Use
  Company Number: US-BAYER-200939897NA

PATIENT
  Age: 72 Year
  Sex: Male
  Weight: 78.912 kg

DRUGS (6)
  1. ACETYLSALICYLIC ACID SRT [Concomitant]
     Dosage: 325 MG, QD
     Route: 048
  2. CONTRAST MEDIA [Concomitant]
     Indication: CATHETERISATION CARDIAC
     Dosage: UNK
     Dates: start: 20070413
  3. TRASYLOL [Suspect]
     Indication: CORONARY ARTERY BYPASS
     Route: 042
     Dates: start: 20070416
  4. POTASSIUM [Concomitant]
     Dosage: 20 MEQ, QD
  5. CARDURA [Concomitant]
     Dosage: 2 MG, QD
  6. HYZAAR [Concomitant]
     Dosage: 25 MG, QD
     Route: 048

REACTIONS (10)
  - DEPRESSION [None]
  - CARDIOGENIC SHOCK [None]
  - INJURY [None]
  - ANXIETY [None]
  - RENAL FAILURE [None]
  - MYOCARDIAL INFARCTION [None]
  - FEAR [None]
  - PAIN [None]
  - ANHEDONIA [None]
  - UNEVALUABLE EVENT [None]
